FAERS Safety Report 20855111 (Version 1)
Quarter: 2022Q2

REPORT INFORMATION
  Report Type: Spontaneous
  Country: RO (occurrence: None)
  Receive Date: 20220520
  Receipt Date: 20220520
  Transmission Date: 20220721
  Serious: Yes (Other)
  Sender: FDA-Public Use
  Company Number: RO-Fresenius Kabi-FK202205836

PATIENT
  Age: 67 Year
  Sex: Male

DRUGS (11)
  1. DEXTROSE [Suspect]
     Active Substance: DEXTROSE
     Indication: Prostate cancer
  2. DEXTROSE [Suspect]
     Active Substance: DEXTROSE
  3. DEXTROSE [Suspect]
     Active Substance: DEXTROSE
  4. LEUCOVORIN CALCIUM [Suspect]
     Active Substance: LEUCOVORIN CALCIUM
     Indication: Prostate cancer
     Dosage: FOLFOX
  5. OXALIPLATIN [Suspect]
     Active Substance: OXALIPLATIN
     Indication: Prostate cancer
     Dosage: FOLFOX
  6. OXALIPLATIN [Suspect]
     Active Substance: OXALIPLATIN
  7. CAPECITABINE [Suspect]
     Active Substance: CAPECITABINE
     Indication: Prostate cancer
     Dosage: DAYS 1-14
     Route: 048
  8. PANITUMUMAB [Suspect]
     Active Substance: PANITUMUMAB
     Indication: Prostate cancer
  9. SODIUM CHLORIDE [Suspect]
     Active Substance: SODIUM CHLORIDE
     Indication: Prostate cancer
     Dosage: 0.9 PERCENT
  10. FLUOROURACIL [Suspect]
     Active Substance: FLUOROURACIL
     Indication: Prostate cancer
     Dosage: FOLFOX
  11. FLUOROURACIL [Suspect]
     Active Substance: FLUOROURACIL
     Dosage: FOLFOX
     Route: 040

REACTIONS (1)
  - Thrombocytopenia [Recovering/Resolving]
